FAERS Safety Report 21786974 (Version 2)
Quarter: 2022Q4

REPORT INFORMATION
  Report Type: Spontaneous
  Country: JP (occurrence: JP)
  Receive Date: 20221228
  Receipt Date: 20221230
  Transmission Date: 20230113
  Serious: Yes (Other)
  Sender: FDA-Public Use
  Company Number: JP-AMGEN-JPNSP2022221798

PATIENT

DRUGS (2)
  1. BLINCYTO [Suspect]
     Active Substance: BLINATUMOMAB
     Indication: B precursor type acute leukaemia
     Dosage: 28 MICROGRAM, QD 24 HOUR CONTINUOUS
     Route: 040
     Dates: start: 20221024
  2. METHOTREXATE [Concomitant]
     Active Substance: METHOTREXATE
     Indication: Acute leukaemia
     Dosage: UNK

REACTIONS (2)
  - Haematochezia [Recovered/Resolved]
  - Lymphocyte count increased [Recovered/Resolved]

NARRATIVE: CASE EVENT DATE: 20221201
